FAERS Safety Report 9370393 (Version 2)
Quarter: 2013Q3

REPORT INFORMATION
  Report Type: Other
  Country: DK (occurrence: DK)
  Receive Date: 20130626
  Receipt Date: 20130723
  Transmission Date: 20140515
  Serious: Yes (Hospitalization)
  Sender: FDA-Public Use
  Company Number: DK-ACTAVIS-2013-11380

PATIENT
  Age: 69 Year
  Sex: Female

DRUGS (7)
  1. EPIRUBICIN HYDROCHLORIDE (UNKNOWN) [Suspect]
     Indication: PRODUCT USED FOR UNKNOWN INDICATION
     Dosage: 153 MG, EVERY 3 WEEKS
     Route: 065
  2. DOCETAXEL (UNKNOWN) [Suspect]
     Indication: BREAST CANCER
     Dosage: 128 MG, EVERY 3 WEEKS
     Route: 042
     Dates: start: 20121218
  3. CYCLOPHOSPHAMIDE (UNKNOWN) [Suspect]
     Indication: BREAST CANCER
     Dosage: 850 MG, EVERY 3 WEEKS
     Route: 042
     Dates: start: 20121218
  4. PEGFILGRASTIM [Suspect]
     Indication: BREAST CANCER
     Dosage: UNK
     Route: 042
     Dates: start: 20130220
  5. FLUOROURACIL [Suspect]
     Indication: BREAST CANCER
     Dosage: UNK
     Route: 042
  6. PERTUZUMAB [Suspect]
     Indication: BREAST CANCER
     Route: 065
  7. TRASTUZUMAB [Suspect]
     Indication: BREAST CANCER
     Dosage: 6 MG/KG, 3 WEEKS
     Route: 065

REACTIONS (3)
  - Musculoskeletal pain [Recovered/Resolved]
  - Pyrexia [Recovered/Resolved]
  - Skin infection [Recovered/Resolved]
